FAERS Safety Report 5635666-1 (Version None)
Quarter: 2008Q1

REPORT INFORMATION
  Report Type: 
  Country: None (occurrence: None)
  Receive Date: 20080220
  Receipt Date: 20080204
  Transmission Date: 20080703
  Serious: Yes (Other)
  Sender: FDA-Public Use
  Company Number: 2005JP001873

PATIENT
  Age: 52 Year
  Sex: Female

DRUGS (2)
  1. PROGRAF [Suspect]
     Indication: MYASTHENIA GRAVIS
     Dosage: 2 MG, ORAL
     Route: 048
     Dates: start: 20020801
  2. PREDNISOLONE [Concomitant]

REACTIONS (2)
  - APLASIA PURE RED CELL [None]
  - AUTOIMMUNE DISORDER [None]
